FAERS Safety Report 21029016 (Version 1)
Quarter: 2022Q2

REPORT INFORMATION
  Report Type: Report from Study
  Country: DE (occurrence: DE)
  Receive Date: 20220630
  Receipt Date: 20220630
  Transmission Date: 20220721
  Serious: Yes (Hospitalization)
  Sender: FDA-Public Use
  Company Number: DE-TAKEDA-2022TUS042727

PATIENT
  Age: 48 Year
  Sex: Female

DRUGS (91)
  1. TEDUGLUTIDE [Suspect]
     Active Substance: TEDUGLUTIDE
     Indication: Short-bowel syndrome
     Dosage: 2.45 MILLIGRAM, QD
     Route: 042
     Dates: start: 20170719, end: 20170720
  2. TEDUGLUTIDE [Suspect]
     Active Substance: TEDUGLUTIDE
     Indication: Short-bowel syndrome
     Dosage: 2.45 MILLIGRAM, QD
     Route: 042
     Dates: start: 20170719, end: 20170720
  3. TEDUGLUTIDE [Suspect]
     Active Substance: TEDUGLUTIDE
     Indication: Short-bowel syndrome
     Dosage: 2.45 MILLIGRAM, QD
     Route: 042
     Dates: start: 20170719, end: 20170720
  4. TEDUGLUTIDE [Suspect]
     Active Substance: TEDUGLUTIDE
     Indication: Short-bowel syndrome
     Dosage: 2.45 MILLIGRAM, QD
     Route: 042
     Dates: start: 20170719, end: 20170720
  5. TEDUGLUTIDE [Suspect]
     Active Substance: TEDUGLUTIDE
     Dosage: 1.25 MILLIGRAM, QD
     Route: 042
     Dates: start: 20170720, end: 201903
  6. TEDUGLUTIDE [Suspect]
     Active Substance: TEDUGLUTIDE
     Dosage: 1.25 MILLIGRAM, QD
     Route: 042
     Dates: start: 20170720, end: 201903
  7. TEDUGLUTIDE [Suspect]
     Active Substance: TEDUGLUTIDE
     Dosage: 1.25 MILLIGRAM, QD
     Route: 042
     Dates: start: 20170720, end: 201903
  8. TEDUGLUTIDE [Suspect]
     Active Substance: TEDUGLUTIDE
     Dosage: 1.25 MILLIGRAM, QD
     Route: 042
     Dates: start: 20170720, end: 201903
  9. TEDUGLUTIDE [Suspect]
     Active Substance: TEDUGLUTIDE
     Dosage: 2.4 MILLIGRAM, QD
     Route: 042
     Dates: start: 201902, end: 20200806
  10. TEDUGLUTIDE [Suspect]
     Active Substance: TEDUGLUTIDE
     Dosage: 2.4 MILLIGRAM, QD
     Route: 042
     Dates: start: 201902, end: 20200806
  11. TEDUGLUTIDE [Suspect]
     Active Substance: TEDUGLUTIDE
     Dosage: 2.4 MILLIGRAM, QD
     Route: 042
     Dates: start: 201902, end: 20200806
  12. TEDUGLUTIDE [Suspect]
     Active Substance: TEDUGLUTIDE
     Dosage: 2.4 MILLIGRAM, QD
     Route: 042
     Dates: start: 201902, end: 20200806
  13. VALSARTAN [Concomitant]
     Active Substance: VALSARTAN
     Indication: Hypertension
     Dosage: 160 MILLIGRAM, BID
     Route: 048
     Dates: end: 201906
  14. VALSARTAN [Concomitant]
     Active Substance: VALSARTAN
     Dosage: 160 MILLIGRAM, BID
     Route: 048
     Dates: start: 20200731
  15. BISOPROLOL [Concomitant]
     Active Substance: BISOPROLOL
     Indication: Hypertension
     Dosage: 5 MILLIGRAM, BID
     Route: 048
     Dates: start: 2017
  16. LERCANIDIPINE [Concomitant]
     Active Substance: LERCANIDIPINE
     Indication: Hypertension
     Dosage: 10 MILLIGRAM, BID
     Route: 048
     Dates: start: 2017, end: 201807
  17. LERCANIDIPINE [Concomitant]
     Active Substance: LERCANIDIPINE
     Dosage: 10 MILLIGRAM, QD
     Route: 048
     Dates: start: 201806, end: 201809
  18. LERCANIDIPINE [Concomitant]
     Active Substance: LERCANIDIPINE
     Dosage: 20 MILLIGRAN, BID
     Route: 048
     Dates: start: 201809, end: 202006
  19. LERCANIDIPINE [Concomitant]
     Active Substance: LERCANIDIPINE
     Dosage: 20 MILLIGRAM, QD
     Route: 048
     Dates: start: 202006
  20. SIMVASTATIN [Concomitant]
     Active Substance: SIMVASTATIN
     Indication: Cardiovascular disorder
     Dosage: 20 MILLIGRAM, QD
     Route: 048
  21. SIMVASTATIN [Concomitant]
     Active Substance: SIMVASTATIN
     Dosage: 160 MILLIGRAM, BID
     Route: 048
     Dates: start: 2017
  22. PANTOPRAZOLE [Concomitant]
     Active Substance: PANTOPRAZOLE
     Indication: Gastric pH increased
     Dosage: 40 MILLIGRAM, BID
     Route: 048
     Dates: end: 201805
  23. PANTOPRAZOLE [Concomitant]
     Active Substance: PANTOPRAZOLE
     Dosage: 40 MILLIGRAM, BID
     Route: 042
     Dates: start: 201907
  24. CALCITRIOL [Concomitant]
     Active Substance: CALCITRIOL
     Indication: Supplementation therapy
     Dosage: 0.25 MICROGRAM, BID
     Route: 048
     Dates: start: 201711, end: 201809
  25. MESALAMINE [Concomitant]
     Active Substance: MESALAMINE
     Indication: Colitis ulcerative
     Dosage: 3 GRAM, QD
     Route: 048
     Dates: end: 201807
  26. MESALAMINE [Concomitant]
     Active Substance: MESALAMINE
     Dosage: 1.5 GRAM, QD
     Route: 048
     Dates: start: 201809, end: 201903
  27. MESALAMINE [Concomitant]
     Active Substance: MESALAMINE
     Dosage: 3 GRAM, QD
     Route: 048
     Dates: start: 201903, end: 201907
  28. MESALAMINE [Concomitant]
     Active Substance: MESALAMINE
     Dosage: 1.5 GRAM, QD
     Route: 048
     Dates: start: 201907
  29. SPIRONOLACTONE [Concomitant]
     Active Substance: SPIRONOLACTONE
     Indication: Oedema
     Dosage: 25 MILLIGRAM, BID
     Route: 048
     Dates: start: 20170802, end: 20200615
  30. SPIRONOLACTONE [Concomitant]
     Active Substance: SPIRONOLACTONE
     Dosage: 50 MILLIGRAM, BID
     Route: 048
     Dates: start: 20200616
  31. ERGOCALCIFEROL\PHYTONADIONE\RETINOL\TOCOPHEROL [Concomitant]
     Active Substance: ERGOCALCIFEROL\PHYTONADIONE\RETINOL\TOCOPHEROL
     Indication: Hypovitaminosis
     Dosage: 10 MILLILITER, UNK
     Route: 042
  32. SODIUM BICARBONATE [Concomitant]
     Active Substance: SODIUM BICARBONATE
     Indication: Blood bicarbonate decreased
     Dosage: 100 MILLILITER
     Route: 042
     Dates: end: 20171011
  33. SODIUM BICARBONATE [Concomitant]
     Active Substance: SODIUM BICARBONATE
     Dosage: 100 MILLILITER
     Route: 042
     Dates: start: 20171011, end: 201711
  34. SODIUM BICARBONATE [Concomitant]
     Active Substance: SODIUM BICARBONATE
     Dosage: 200 MILLILITER, QOD
     Route: 042
     Dates: start: 201711, end: 20171121
  35. SODIUM BICARBONATE [Concomitant]
     Active Substance: SODIUM BICARBONATE
     Dosage: 100 MILLILITER
     Route: 042
     Dates: start: 20171121, end: 20200617
  36. SODIUM BICARBONATE [Concomitant]
     Active Substance: SODIUM BICARBONATE
     Dosage: 100 MILLILITER, QD
     Route: 042
     Dates: start: 202008
  37. SODIUM BICARBONATE [Concomitant]
     Active Substance: SODIUM BICARBONATE
     Dosage: 200 MILLILITER, QD
     Route: 042
     Dates: start: 20200618, end: 202008
  38. PERENTEROL [Concomitant]
     Active Substance: SACCHAROMYCES CEREVISIAE
     Indication: Gastroenteritis
     Dosage: 250 MILLIGRAM, BID
     Route: 048
     Dates: start: 20171112, end: 20171121
  39. PERENTEROL [Concomitant]
     Active Substance: SACCHAROMYCES CEREVISIAE
     Indication: Diarrhoea
  40. FOLIC ACID [Concomitant]
     Active Substance: FOLIC ACID
     Indication: Folate deficiency
     Dosage: 0.40 MILLIGRAM, BID
     Route: 048
     Dates: start: 201807, end: 201809
  41. FOLIC ACID [Concomitant]
     Active Substance: FOLIC ACID
     Dosage: 5 MILLIGRAM, QD
     Route: 048
     Dates: start: 201809, end: 201907
  42. FOLIC ACID [Concomitant]
     Active Substance: FOLIC ACID
     Dosage: 0.4 MILLIGRAM, BID
     Route: 048
     Dates: start: 20190701, end: 20190801
  43. FOLIC ACID [Concomitant]
     Active Substance: FOLIC ACID
     Dosage: 5 MILLIGRAM, QD
     Route: 048
     Dates: start: 201908, end: 202007
  44. FOLIC ACID [Concomitant]
     Active Substance: FOLIC ACID
     Dosage: 5 MILLIGRAM, 1/WEEK
     Route: 048
     Dates: start: 202007
  45. CHOLECALCIFEROL [Concomitant]
     Active Substance: CHOLECALCIFEROL
     Indication: Vitamin D deficiency
     Dosage: 500 MILLIGRAM, BID
     Route: 048
     Dates: start: 201807, end: 202006
  46. CHOLECALCIFEROL [Concomitant]
     Active Substance: CHOLECALCIFEROL
     Dosage: 20000 INTERNATIONAL UNIT, Q2WEEKS
     Route: 042
     Dates: start: 202007
  47. NEXIUM [Concomitant]
     Active Substance: ESOMEPRAZOLE MAGNESIUM
     Indication: Gastric pH increased
     Dosage: 40 MILLIGRAM, BID
     Route: 048
     Dates: start: 201805, end: 201809
  48. NEXIUM [Concomitant]
     Active Substance: ESOMEPRAZOLE MAGNESIUM
     Indication: Dyspepsia
     Dosage: 40 MILLIGRAM, QID
     Route: 048
     Dates: start: 201811, end: 201903
  49. NEXIUM [Concomitant]
     Active Substance: ESOMEPRAZOLE MAGNESIUM
     Dosage: 40 MILLIGRAM, BID
     Route: 048
     Dates: start: 201903, end: 202006
  50. NEXIUM [Concomitant]
     Active Substance: ESOMEPRAZOLE MAGNESIUM
     Dosage: 20 MILLIGRAM, QD
     Route: 048
     Dates: start: 202006, end: 202009
  51. NEXIUM [Concomitant]
     Active Substance: ESOMEPRAZOLE MAGNESIUM
     Dosage: 50 MILLIGRAM, BID
     Route: 048
     Dates: start: 201903, end: 202006
  52. NEXIUM [Concomitant]
     Active Substance: ESOMEPRAZOLE MAGNESIUM
     Dosage: 20 MILLIGRAM, QD
     Route: 048
     Dates: start: 202006, end: 202009
  53. VITAMIN D [Concomitant]
     Active Substance: VITAMIN D NOS
     Indication: Vitamin D deficiency
     Dosage: 2000 INTERNATIONAL UNIT, QD
     Route: 048
     Dates: start: 201903
  54. FLUOCORTOLONE PIVALATE\LIDOCAINE HYDROCHLORIDE [Concomitant]
     Active Substance: FLUOCORTOLONE PIVALATE\LIDOCAINE HYDROCHLORIDE
     Indication: Anal pruritus
     Dosage: UNK UNK, BID
     Route: 054
     Dates: start: 201811, end: 2018
  55. CITALOPRAM [Concomitant]
     Active Substance: CITALOPRAM HYDROBROMIDE
     Indication: Depression
     Dosage: UNK
     Route: 048
     Dates: start: 201805
  56. ZINC [Concomitant]
     Active Substance: ZINC
     Indication: Zinc deficiency
     Dosage: 15 MILLIGRAM, BID
     Route: 048
     Dates: start: 201903, end: 201908
  57. ZINC [Concomitant]
     Active Substance: ZINC
     Dosage: 15 MILLIGRAM, QD
     Route: 048
     Dates: start: 20190801
  58. CANDESARTAN [Concomitant]
     Active Substance: CANDESARTAN
     Indication: Hypertension
     Dosage: 16 MILLIGRAM, BID
     Route: 048
     Dates: start: 201906
  59. DIHYDRALAZINE [Concomitant]
     Active Substance: DIHYDRALAZINE
     Indication: Hypertension
     Dosage: 29 MILLIGRAM, QD
     Route: 048
     Dates: start: 201906
  60. PROMETHAZINE [Concomitant]
     Active Substance: PROMETHAZINE HYDROCHLORIDE
     Dosage: 25 MILLIGRAM
     Route: 048
     Dates: start: 201807
  61. NITROGLYCERIN [Concomitant]
     Active Substance: NITROGLYCERIN
     Indication: Hypertension
     Dosage: UNK
     Route: 060
  62. LOPERAMIDE [Concomitant]
     Active Substance: LOPERAMIDE
     Indication: Diarrhoea
     Dosage: 2 MILLIGRAM
     Route: 048
  63. PLAVIX [Concomitant]
     Active Substance: CLOPIDOGREL BISULFATE
     Dosage: 75 MILLIGRAM, QD
     Route: 048
     Dates: start: 201703, end: 2017
  64. NITROGLYCERIN [Concomitant]
     Active Substance: NITROGLYCERIN
     Dosage: UNK
     Route: 048
     Dates: start: 201711
  65. OPIPRAMOL [Concomitant]
     Active Substance: OPIPRAMOL
     Dosage: 100 MILLIGRAM, QD
     Route: 048
     Dates: start: 201807, end: 201907
  66. Selenase [Concomitant]
     Dosage: 100 MICROGRAM, QD
     Route: 048
     Dates: start: 20180701
  67. CALCIUM CHLORIDE\MAGNESIUM CHLORIDE\POTASSIUM CHLORIDE\SODIUM ACETATE\ [Concomitant]
     Active Substance: CALCIUM CHLORIDE\MAGNESIUM CHLORIDE\POTASSIUM CHLORIDE\SODIUM ACETATE\SODIUM CHLORIDE
     Dosage: 1000 MILLILITER, BID
     Route: 065
     Dates: start: 201903, end: 201908
  68. DARBEPOETIN ALFA [Concomitant]
     Active Substance: DARBEPOETIN ALFA
     Dosage: 40 MICROGRAM, MONTHLY
     Route: 042
     Dates: start: 2022
  69. KONAKION [Concomitant]
     Active Substance: PHYTONADIONE
     Indication: Vitamin K deficiency
     Dosage: 2 MILLIGRAM, QD
     Route: 048
     Dates: start: 202006
  70. CHOLESTYRAMINE [Concomitant]
     Active Substance: CHOLESTYRAMINE
     Dosage: 4 MILLIGRAM, TID
     Route: 048
     Dates: start: 202007, end: 202205
  71. SODIUM BICARBONATE [Concomitant]
     Active Substance: SODIUM BICARBONATE
     Dosage: UNK UNK, TID
     Route: 048
     Dates: start: 202008, end: 202009
  72. ARANESP [Concomitant]
     Active Substance: DARBEPOETIN ALFA
     Indication: Dyspepsia
     Dosage: 400 INTERNATIONAL UNIT
     Route: 048
     Dates: start: 202009
  73. ARANESP [Concomitant]
     Active Substance: DARBEPOETIN ALFA
     Dosage: 40 MICROGRAM
     Route: 065
     Dates: start: 20200618
  74. METAMIZOLE [Concomitant]
     Active Substance: METAMIZOLE
     Dosage: 500 MILLIGRAM
     Route: 048
     Dates: start: 20200915
  75. TORSEMIDE [Concomitant]
     Active Substance: TORSEMIDE
     Indication: Oedema
     Dosage: 5 MILLIGRAM, QD
     Route: 048
     Dates: start: 20190408, end: 201906
  76. TORSEMIDE [Concomitant]
     Active Substance: TORSEMIDE
     Indication: Volume blood decreased
     Dosage: 2.5 MILLIGRAM, QD
     Route: 048
     Dates: start: 201906
  77. TORSEMIDE [Concomitant]
     Active Substance: TORSEMIDE
     Indication: Hypervolaemia
     Dosage: 10 MILLIGRAM, BID
     Route: 048
     Dates: start: 202206, end: 2022
  78. ATORVASTATIN [Concomitant]
     Active Substance: ATORVASTATIN
     Indication: Hypervolaemia
     Dosage: 20 MILLIGRAM, QD
     Route: 048
     Dates: start: 2022
  79. ATORVASTATIN [Concomitant]
     Active Substance: ATORVASTATIN
     Indication: Ischaemic stroke
  80. CALCIUM [Concomitant]
     Active Substance: CALCIUM
     Indication: Vitamin C deficiency
     Dosage: 500 MILLIGRAM, QD
     Route: 048
     Dates: start: 201805, end: 2020
  81. DOXAZOSIN [Concomitant]
     Active Substance: DOXAZOSIN MESYLATE
     Indication: Hypertension
     Dosage: 4 MILLIGRAM, BID
     Route: 048
     Dates: start: 201807, end: 201908
  82. DOXAZOSIN [Concomitant]
     Active Substance: DOXAZOSIN MESYLATE
     Dosage: 8 MILLIGRAM, QD
     Route: 048
     Dates: start: 20190801
  83. SELENIUM [Concomitant]
     Active Substance: SELENIUM
     Indication: Selenium deficiency
     Dosage: UNK UNK, QD
     Route: 048
     Dates: start: 201906, end: 202009
  84. PANCREATIN [Concomitant]
     Active Substance: PANCRELIPASE
     Indication: Dyspepsia
     Dosage: 2000 INTERNATIONAL UNIT, QID
     Route: 048
     Dates: start: 201809, end: 201908
  85. PANCREATIN [Concomitant]
     Active Substance: PANCRELIPASE
     Dosage: 20000 INTERNATIONAL UNIT
     Route: 048
     Dates: start: 201908, end: 202009
  86. PANCRELIPASE [Concomitant]
     Active Substance: PANCRELIPASE
     Indication: Dyspepsia
     Dosage: 40000 INTERNATIONAL UNIT
     Route: 048
     Dates: start: 202009
  87. Nepresol [Concomitant]
     Indication: Hypertension
     Dosage: 29 MILLIGRAM, QD
     Route: 048
     Dates: start: 202009
  88. EDOXABAN [Concomitant]
     Active Substance: EDOXABAN
     Indication: Anticoagulant therapy
     Dosage: 30 MILLIGRAM, QD
     Route: 048
     Dates: start: 2017
  89. LEVOTHYROXINE SODIUM [Concomitant]
     Active Substance: LEVOTHYROXINE SODIUM
     Indication: Hypothyroidism
     Dosage: 100 MICROGRAM, QD
     Route: 048
     Dates: end: 201906
  90. LEVOTHYROXINE SODIUM [Concomitant]
     Active Substance: LEVOTHYROXINE SODIUM
     Dosage: 200 MICROGRAM, TID
     Route: 048
     Dates: start: 201906, end: 202011
  91. LEVOTHYROXINE SODIUM [Concomitant]
     Active Substance: LEVOTHYROXINE SODIUM
     Dosage: 700 MICROGRAM, QD
     Route: 048
     Dates: start: 20201101

REACTIONS (1)
  - Device dislocation [Recovered/Resolved]

NARRATIVE: CASE EVENT DATE: 20200914
